FAERS Safety Report 17593157 (Version 1)
Quarter: 2020Q1

REPORT INFORMATION
  Report Type: Spontaneous
  Country: ES (occurrence: ES)
  Receive Date: 20200327
  Receipt Date: 20200327
  Transmission Date: 20200409
  Serious: Yes (Hospitalization)
  Sender: FDA-Public Use
  Company Number: ES-TEVA-2020-ES-1213798

PATIENT
  Age: 53 Year
  Sex: Female

DRUGS (5)
  1. RALTEGRAVIR. [Interacting]
     Active Substance: RALTEGRAVIR
     Indication: HIV INFECTION
     Dosage: 800 MILLIGRAM DAILY;
     Route: 065
  2. GLECAPREVIR/PIBRENTASVIR [Concomitant]
     Active Substance: GLECAPREVIR\PIBRENTASVIR
     Indication: HEPATITIS C
     Route: 065
  3. BOSENTAN. [Suspect]
     Active Substance: BOSENTAN
     Indication: PULMONARY ARTERIAL HYPERTENSION
     Dosage: 250 MILLIGRAM DAILY; REINTRODUCED ON APRIL 2018
     Route: 065
  4. DARUNAVIR/COBICISTAT [Interacting]
     Active Substance: COBICISTAT\DARUNAVIR ETHANOLATE
     Indication: HIV INFECTION
     Dosage: 1 DOSAGE FORMS DAILY;
     Route: 065
     Dates: start: 201804
  5. TADALAFIL. [Concomitant]
     Active Substance: TADALAFIL
     Indication: PULMONARY ARTERIAL HYPERTENSION
     Dosage: 20 MILLIGRAM DAILY;
     Route: 065

REACTIONS (8)
  - Toxicity to various agents [Recovering/Resolving]
  - Cardiac failure congestive [Recovered/Resolved]
  - Cardiac failure [Recovering/Resolving]
  - Virologic failure [Recovering/Resolving]
  - Respiratory failure [Recovering/Resolving]
  - Drug interaction [Recovering/Resolving]
  - Fluid retention [Recovering/Resolving]
  - Drug resistance [Unknown]

NARRATIVE: CASE EVENT DATE: 2018
